FAERS Safety Report 19259774 (Version 1)
Quarter: 2021Q2

REPORT INFORMATION
  Report Type: Spontaneous
  Country: US (occurrence: US)
  Receive Date: 20210514
  Receipt Date: 20210514
  Transmission Date: 20210717
  Serious: No
  Sender: FDA-Public Use
  Company Number: US-PFIZER INC-2021495596

PATIENT
  Sex: Male

DRUGS (15)
  1. ADVAIR HFA [Concomitant]
     Active Substance: FLUTICASONE PROPIONATE\SALMETEROL XINAFOATE
     Dosage: 100?50 MCG BLST W/DEV
  2. METOPROLOL SUCCINATE. [Concomitant]
     Active Substance: METOPROLOL SUCCINATE
     Dosage: UNK
  3. LENVIMA [Concomitant]
     Active Substance: LENVATINIB
     Indication: RENAL NEOPLASM
     Dosage: 18 MG, DAILY (1?10 MG/2?4 MG ONCE DAILY)
     Route: 048
     Dates: start: 20210112
  4. CEFDINIR. [Concomitant]
     Active Substance: CEFDINIR
     Dosage: UNK
  5. DULOXETINE HCL [Concomitant]
     Active Substance: DULOXETINE HYDROCHLORIDE
     Dosage: UNK
  6. DILAUDID [Concomitant]
     Active Substance: HYDROMORPHONE HYDROCHLORIDE
     Dosage: UNK
  7. BREO ELLIPTA [Concomitant]
     Active Substance: FLUTICASONE FUROATE\VILANTEROL TRIFENATATE
     Dosage: 100?25 MCG BLST W/DEV
  8. DUTASTERIDE/TAMSULOSIN [Concomitant]
     Active Substance: DUTASTERIDE\TAMSULOSIN HYDROCHLORIDE
     Dosage: UNK
  9. VITAMIN D3 [Concomitant]
     Active Substance: CHOLECALCIFEROL
     Dosage: UNK
  10. CLOBETASOL [Concomitant]
     Active Substance: CLOBETASOL
     Dosage: UNK
  11. GABAPENTIN. [Suspect]
     Active Substance: GABAPENTIN
     Dosage: UNK
  12. OMEPRAZOLE. [Concomitant]
     Active Substance: OMEPRAZOLE
     Dosage: UNK
  13. NORVASC [Suspect]
     Active Substance: AMLODIPINE BESYLATE
     Indication: HYPERTENSION
     Dosage: 2.5 MG, 2X/DAY
  14. SINGULAIR [Concomitant]
     Active Substance: MONTELUKAST SODIUM
     Dosage: UNK
  15. GAVISCON [SODIUM ALGINATE;SODIUM BICARBONATE] [Concomitant]
     Active Substance: SODIUM ALGINATE\SODIUM BICARBONATE
     Dosage: 105?160 MG

REACTIONS (5)
  - Asthenia [Unknown]
  - Diarrhoea [Unknown]
  - Constipation [Unknown]
  - Oral discomfort [Unknown]
  - Hypersomnia [Unknown]
